FAERS Safety Report 5635027-5 (Version None)
Quarter: 2008Q1

REPORT INFORMATION
  Report Type: 
  Country: None (occurrence: None)
  Receive Date: 20080221
  Receipt Date: 20080221
  Transmission Date: 20080703
  Serious: Yes (Life-Threatening)
  Sender: FDA-Public Use
  Company Number: None

PATIENT
  Age: 46 Year
  Sex: Female
  Weight: 72.5755 kg

DRUGS (1)
  1. TRAMADOL HCL [Suspect]
     Indication: PLEURISY
     Dosage: ONE PILL 4 TIMES DAILY
     Dates: start: 20080212, end: 20080215

REACTIONS (1)
  - DYSPNOEA [None]
